FAERS Safety Report 23550844 (Version 3)
Quarter: 2024Q4

REPORT INFORMATION
  Report Type: Spontaneous
  Country: JP (occurrence: JP)
  Receive Date: 20240221
  Receipt Date: 20241001
  Transmission Date: 20250115
  Serious: Yes (Other)
  Sender: MERCK
  Company Number: JP-MSD-M2024-06319

PATIENT
  Age: 9 Decade
  Sex: Male

DRUGS (1)
  1. KEYTRUDA [Suspect]
     Active Substance: PEMBROLIZUMAB
     Indication: Non-small cell lung cancer
     Dosage: 200 MILLIGRAM, Q3W
     Route: 041

REACTIONS (5)
  - Delirium [Unknown]
  - Adrenal insufficiency [Recovering/Resolving]
  - C-reactive protein increased [Recovering/Resolving]
  - Fall [Unknown]
  - Fracture [Unknown]
